FAERS Safety Report 12889020 (Version 2)
Quarter: 2017Q2

REPORT INFORMATION
  Report Type: Report from Study
  Country: JP (occurrence: JP)
  Receive Date: 20161027
  Receipt Date: 20170616
  Transmission Date: 20170830
  Serious: Yes (Hospitalization)
  Sender: FDA-Public Use
  Company Number: PHJP2016JP002900

PATIENT
  Age: 59 Year
  Sex: Female
  Weight: 83 kg

DRUGS (7)
  1. NEORAL [Concomitant]
     Active Substance: CYCLOSPORINE
     Dosage: 35 MG, QD
     Route: 048
     Dates: start: 20151109
  2. MYCOPHENOLATE MOFETIL. [Concomitant]
     Active Substance: MYCOPHENOLATE MOFETIL
     Indication: RENAL TRANSPLANT
     Dosage: 500 MG, QD
     Route: 048
     Dates: start: 20150518
  3. CERTICAN [Suspect]
     Active Substance: EVEROLIMUS
     Indication: RENAL TRANSPLANT
     Dosage: 0.5 MG, UNK
     Route: 048
     Dates: start: 20150518, end: 20151116
  4. NEORAL [Concomitant]
     Active Substance: CYCLOSPORINE
     Indication: RENAL TRANSPLANT
     Dosage: 60 MG, QD
     Route: 048
     Dates: start: 20150518
  5. PREDNISOL [Concomitant]
     Indication: PRODUCT USED FOR UNKNOWN INDICATION
     Dosage: 5 MG, UNK
     Route: 048
  6. NEORAL [Concomitant]
     Active Substance: CYCLOSPORINE
     Dosage: 40 MG, QD
     Route: 048
     Dates: start: 20150615
  7. NEORAL [Concomitant]
     Active Substance: CYCLOSPORINE
     Dosage: 40 MG, QD
     Route: 048
     Dates: start: 20150810

REACTIONS (1)
  - Diverticular perforation [Recovered/Resolved]

NARRATIVE: CASE EVENT DATE: 20151116
